FAERS Safety Report 13297254 (Version 1)
Quarter: 2017Q1

REPORT INFORMATION
  Report Type: Spontaneous
  Country: US (occurrence: US)
  Receive Date: 20170303
  Receipt Date: 20170303
  Transmission Date: 20170428
  Serious: Yes (Hospitalization)
  Sender: FDA-Public Use
  Company Number: None

PATIENT
  Age: 78 Year
  Sex: Female
  Weight: 68.8 kg

DRUGS (34)
  1. APIXABAN [Suspect]
     Active Substance: APIXABAN
     Indication: ATRIAL FIBRILLATION
     Route: 048
     Dates: start: 20160325, end: 20170301
  2. CLOPIDOGREL [Concomitant]
     Active Substance: CLOPIDOGREL BISULFATE
  3. DIPHENOXYLATE-ATROPINE [Concomitant]
  4. FLUOXETINE [Concomitant]
     Active Substance: FLUOXETINE HYDROCHLORIDE
  5. FUROSEMIDE. [Concomitant]
     Active Substance: FUROSEMIDE
  6. INSULIN ASPART [Concomitant]
     Active Substance: INSULIN ASPART
  7. INSULIN DEGLUDEC [Concomitant]
     Active Substance: INSULIN DEGLUDEC
  8. MENTHOL-ZINC OXIDE [Concomitant]
  9. ONDANSETRON [Concomitant]
     Active Substance: ONDANSETRON
  10. SACCHAROMYCES BOULARDII [Concomitant]
     Active Substance: SACCHAROMYCES CEREVISIAE
  11. APIXABAN [Concomitant]
     Active Substance: APIXABAN
  12. CALCIUM ACETATE. [Concomitant]
     Active Substance: CALCIUM ACETATE
  13. CERTOLIZUMAB PEGOL [Concomitant]
     Active Substance: CERTOLIZUMAB PEGOL
  14. HYDROCODONE-ACETAMINOPHEN [Concomitant]
     Active Substance: ACETAMINOPHEN\HYDROCODONE
  15. ACT AERO INHALER [Concomitant]
  16. MUPIROCIN. [Concomitant]
     Active Substance: MUPIROCIN
  17. ATORVASTATIN [Concomitant]
     Active Substance: ATORVASTATIN
  18. CLONAZEPAM. [Concomitant]
     Active Substance: CLONAZEPAM
  19. SOPN INJECTION-PEN [Concomitant]
  20. B COMPLEX-C-FOLIC ACID [Concomitant]
  21. MULTIPLE VITAMINS-MINERALS [Concomitant]
  22. APIXABAN [Suspect]
     Active Substance: APIXABAN
     Indication: TRANSIENT ISCHAEMIC ATTACK
     Route: 048
     Dates: start: 20160325, end: 20170301
  23. MAGNESIUM OXIDE. [Concomitant]
     Active Substance: MAGNESIUM OXIDE
  24. PREDNISONE. [Concomitant]
     Active Substance: PREDNISONE
  25. VITAMIN E [Concomitant]
     Active Substance: .ALPHA.-TOCOPHEROL
  26. ASCORBIC ACID. [Concomitant]
     Active Substance: ASCORBIC ACID
  27. CINACALCET [Concomitant]
     Active Substance: CINACALCET
  28. DIGOXIN. [Concomitant]
     Active Substance: DIGOXIN
  29. METOPROLOL SUCCINATE. [Concomitant]
     Active Substance: METOPROLOL SUCCINATE
  30. LANSOPRAZOLE. [Concomitant]
     Active Substance: LANSOPRAZOLE
  31. POLYETHYLENE GLYCOL [Concomitant]
     Active Substance: POLYETHYLENE GLYCOLS
  32. CLOPIDOGREL [Suspect]
     Active Substance: CLOPIDOGREL BISULFATE
     Indication: PERIPHERAL ARTERIAL OCCLUSIVE DISEASE
     Route: 048
  33. DARBEPOETIN ALFA-POLYSORBATE [Concomitant]
  34. MOMETASONE-FORMOTEROL [Concomitant]

REACTIONS (1)
  - Arteriovenous fistula site haemorrhage [None]

NARRATIVE: CASE EVENT DATE: 20170302
